FAERS Safety Report 5077400-2 (Version None)
Quarter: 2006Q3

REPORT INFORMATION
  Report Type: 
  Country: None (occurrence: None)
  Receive Date: 20060810
  Receipt Date: 20060214
  Transmission Date: 20061208
  Serious: No
  Sender: FDA-Public Use
  Company Number: US-GLAXOSMITHKLINE-A0593658A

PATIENT
  Age: 52 Year
  Sex: Female

DRUGS (3)
  1. PAROXETINE HCL [Suspect]
     Dosage: 20MG PER DAY
     Route: 048
  2. PAXIL [Suspect]
     Dosage: 20MG PER DAY
     Route: 048
  3. NO CONCURRENT MEDICATION [Concomitant]

REACTIONS (4)
  - ANGER [None]
  - ANXIETY [None]
  - TREMOR [None]
  - WEIGHT INCREASED [None]
